FAERS Safety Report 18520940 (Version 2)
Quarter: 2021Q1

REPORT INFORMATION
  Report Type: Spontaneous
  Country: US (occurrence: US)
  Receive Date: 20201119
  Receipt Date: 20210311
  Transmission Date: 20210419
  Serious: No
  Sender: FDA-Public Use
  Company Number: US-HIKMA PHARMACEUTICALS USA INC.-US-H14001-20-04662

PATIENT
  Sex: Female

DRUGS (2)
  1. IPRATROPIUM BROMIDE. [Suspect]
     Active Substance: IPRATROPIUM BROMIDE
     Indication: GOITRE
     Route: 045
  2. FLUTICASONE. [Suspect]
     Active Substance: FLUTICASONE
     Indication: GOITRE
     Route: 045

REACTIONS (3)
  - Rhinorrhoea [Recovered/Resolved]
  - Off label use [Unknown]
  - Secretion discharge [Recovered/Resolved]
